FAERS Safety Report 6393285-6 (Version None)
Quarter: 2009Q4

REPORT INFORMATION
  Report Type: 
  Country: None (occurrence: None)
  Receive Date: 20091008
  Receipt Date: 20090927
  Transmission Date: 20100525
  Serious: Yes (Hospitalization)
  Sender: FDA-Public Use
  Company Number: IN-JNJFOC-20090404118

PATIENT
  Sex: Female
  Weight: 68 kg

DRUGS (10)
  1. GOLIMUMAB [Suspect]
     Route: 058
  2. GOLIMUMAB [Suspect]
     Route: 058
  3. GOLIMUMAB [Suspect]
     Route: 058
  4. GOLIMUMAB [Suspect]
     Route: 058
  5. GOLIMUMAB [Suspect]
     Route: 058
  6. GOLIMUMAB [Suspect]
     Indication: COLITIS ULCERATIVE
     Route: 058
  7. AZORAN [Concomitant]
     Indication: COLITIS ULCERATIVE
     Route: 048
  8. SYSFOL [Concomitant]
     Indication: COLITIS ULCERATIVE
  9. BECO ZINC [Concomitant]
     Indication: COLITIS ULCERATIVE
  10. FOLIC ACID [Concomitant]
     Route: 048

REACTIONS (10)
  - ALTERED STATE OF CONSCIOUSNESS [None]
  - ASTHENIA [None]
  - BLOOD ALKALINE PHOSPHATASE INCREASED [None]
  - BLOOD BILIRUBIN DECREASED [None]
  - DIZZINESS [None]
  - HAEMOGLOBIN DECREASED [None]
  - HEADACHE [None]
  - RESTLESSNESS [None]
  - SOMNOLENCE [None]
  - SYNCOPE [None]
